FAERS Safety Report 15726122 (Version 1)
Quarter: 2018Q4

REPORT INFORMATION
  Report Type: Spontaneous
  Country: US (occurrence: US)
  Receive Date: 20181216
  Receipt Date: 20181216
  Transmission Date: 20190205
  Serious: No
  Sender: FDA-Public Use
  Company Number: US-SUPERNUS PHARMACEUTICALS, INC.-2017SUP00311

PATIENT
  Age: 67 Year
  Sex: Male
  Weight: 122.45 kg

DRUGS (4)
  1. TROKENDI XR [Suspect]
     Active Substance: TOPIRAMATE
     Indication: EPILEPSY
     Dosage: 25 MG, 1X/DAY
     Dates: start: 20171106
  2. FYCOMPA [Concomitant]
     Active Substance: PERAMPANEL
     Dosage: 4 MG, 1X/DAY AT 7 AM
  3. SERTRALINE [Concomitant]
     Active Substance: SERTRALINE HYDROCHLORIDE
     Dosage: UNK, 3X/DAY
  4. FYCOMPA [Concomitant]
     Active Substance: PERAMPANEL
     Dosage: 6 MG, 1X/DAY AT 2 PM

REACTIONS (1)
  - Insomnia [Unknown]

NARRATIVE: CASE EVENT DATE: 20171106
